FAERS Safety Report 6146610-5 (Version None)
Quarter: 2009Q2

REPORT INFORMATION
  Report Type: 
  Country: None (occurrence: None)
  Receive Date: 20090403
  Receipt Date: 20090403
  Transmission Date: 20091009
  Serious: Yes (Other)
  Sender: FDA-Public Use
  Company Number: None

PATIENT
  Age: 44 Year
  Sex: Female
  Weight: 117.028 kg

DRUGS (12)
  1. BYETTA [Suspect]
     Indication: DIABETES MELLITUS
     Dosage: 10 MG BID SQ
     Route: 058
     Dates: start: 20070718, end: 20090305
  2. NORVASC [Concomitant]
  3. ATENOLOL [Concomitant]
  4. AVANDIA [Concomitant]
  5. DIABETA [Concomitant]
  6. DIOVAN HCT [Concomitant]
  7. METFORMIN HCL [Concomitant]
  8. LOVAZA [Concomitant]
  9. PRILOSEC [Concomitant]
  10. ATENOLOL [Concomitant]
  11. AVANDIA [Concomitant]
  12. NORVASC [Concomitant]

REACTIONS (1)
  - PANCREATITIS ACUTE [None]
